FAERS Safety Report 16810505 (Version 1)
Quarter: 2019Q3

REPORT INFORMATION
  Report Type: Report from Study
  Country: CO (occurrence: CO)
  Receive Date: 20190916
  Receipt Date: 20190916
  Transmission Date: 20191005
  Serious: Yes (Hospitalization, Other)
  Sender: FDA-Public Use
  Company Number: CO-AMGEN-COLSL2019148127

PATIENT
  Age: 71 Year
  Sex: Male

DRUGS (2)
  1. VECTIBIX [Suspect]
     Active Substance: PANITUMUMAB
     Indication: COLORECTAL CANCER METASTATIC
     Dosage: 60 MILLIGRAM
     Route: 042
     Dates: start: 20190201
  2. VECTIBIX [Suspect]
     Active Substance: PANITUMUMAB
     Dosage: 414 MILLIGRAM, Q2WK
     Route: 042
     Dates: start: 20190201

REACTIONS (4)
  - Ocular hyperaemia [Not Recovered/Not Resolved]
  - Mouth ulceration [Recovered/Resolved]
  - Skin reaction [Unknown]
  - Pharyngeal ulceration [Recovered/Resolved]

NARRATIVE: CASE EVENT DATE: 2019
